FAERS Safety Report 8477303-7 (Version None)
Quarter: 2012Q2

REPORT INFORMATION
  Report Type: 
  Country: None (occurrence: None)
  Receive Date: 20120629
  Receipt Date: 20120626
  Transmission Date: 20120825
  Serious: Yes (Other)
  Sender: FDA-Public Use
  Company Number: US-BAYER-2012-003627

PATIENT
  Age: 45 Year
  Sex: Female
  Weight: 74.5 kg

DRUGS (7)
  1. BETASERON [Suspect]
     Indication: MULTIPLE SCLEROSIS
     Dosage: 8 MIU, QOD
     Route: 058
     Dates: start: 20090210
  2. COENZYME Q10 [Concomitant]
     Dosage: 1 DF, QD
  3. ASCORBIC ACID [Concomitant]
     Dosage: 1 DF, QD
  4. FLAXSEED OIL [Concomitant]
     Dosage: 1 DF, QD
  5. GLUCOSAMINE/MSM [Concomitant]
     Dosage: 1000 MG, QD
  6. VITAMIN E [Concomitant]
     Dosage: 1 DF, QD
  7. VITAMIN D [Concomitant]
     Indication: MULTIPLE SCLEROSIS
     Dosage: 1 DF, QD

REACTIONS (16)
  - UTERINE NEOPLASM [None]
  - MENSTRUATION DELAYED [None]
  - NASAL CONGESTION [None]
  - INFLUENZA LIKE ILLNESS [None]
  - CONTUSION [None]
  - SINUSITIS [None]
  - DIPLOPIA [None]
  - MALAISE [None]
  - UTERINE CYST [None]
  - DIZZINESS [None]
  - UTERINE POLYP [None]
  - OVARIAN CYST [None]
  - MENOPAUSE [None]
  - HEADACHE [None]
  - ENDOMETRIAL HYPERTROPHY [None]
  - VERTIGO [None]
